FAERS Safety Report 4539186-7 (Version None)
Quarter: 2004Q4

REPORT INFORMATION
  Report Type: 
  Country: None (occurrence: None)
  Receive Date: 20041223
  Receipt Date: 20041210
  Transmission Date: 20050328
  Serious: Yes (Hospitalization)
  Sender: FDA-Public Use
  Company Number: 9475

PATIENT
  Age: 86 Year
  Sex: Female

DRUGS (4)
  1. PAMIDRONIC ACID [Suspect]
     Indication: MULTIPLE MYELOMA
  2. ZOLEDRONIC ACID [Suspect]
     Indication: MULTIPLE MYELOMA
     Dosage: 4 MG OTH
     Route: 042
  3. PREDNISOLONE [Concomitant]
  4. EPOETIN ALFA [Concomitant]

REACTIONS (3)
  - GINGIVAL PAIN [None]
  - ORAL PAIN [None]
  - OSTEONECROSIS [None]
